FAERS Safety Report 23129974 (Version 2)
Quarter: 2024Q3

REPORT INFORMATION
  Report Type: Spontaneous
  Country: US (occurrence: US)
  Receive Date: 20231031
  Receipt Date: 20240816
  Transmission Date: 20241017
  Serious: No
  Sender: MYLAN
  Company Number: US-MYLANLABS-2023M1114167

PATIENT
  Sex: Female
  Weight: 22.67 kg

DRUGS (2)
  1. CLONIDINE TRANSDERMAL SYSTEM [Suspect]
     Active Substance: CLONIDINE
     Indication: Hypertension
     Dosage: 0.2 MILLIGRAM, QW,0.1/24 HRS
     Route: 062
     Dates: start: 20230404
  2. CLONIDINE TRANSDERMAL SYSTEM [Suspect]
     Active Substance: CLONIDINE
     Dosage: 0.1 MILLIGRAM, QW
     Route: 062

REACTIONS (2)
  - Fatigue [Not Recovered/Not Resolved]
  - Heart rate decreased [Not Recovered/Not Resolved]
